FAERS Safety Report 14368198 (Version 1)
Quarter: 2018Q1

REPORT INFORMATION
  Report Type: Spontaneous
  Country: AT (occurrence: AT)
  Receive Date: 20180109
  Receipt Date: 20180109
  Transmission Date: 20180509
  Serious: Yes (Other)
  Sender: FDA-Public Use
  Company Number: PHHY2017AT189425

PATIENT
  Age: 90 Year

DRUGS (7)
  1. MIDOSTAURIN [Suspect]
     Active Substance: MIDOSTAURIN
     Dosage: 50 MG, QD
     Route: 065
  2. MIDOSTAURIN [Suspect]
     Active Substance: MIDOSTAURIN
     Indication: SYSTEMIC MASTOCYTOSIS
     Dosage: 50 MG, BID
     Route: 065
     Dates: start: 201606
  3. CLADRIBINE. [Suspect]
     Active Substance: CLADRIBINE
     Dosage: UNK
     Route: 065
     Dates: start: 201610
  4. CLADRIBINE. [Suspect]
     Active Substance: CLADRIBINE
     Dosage: UNK
     Route: 065
     Dates: start: 201704
  5. CORTISONE [Concomitant]
     Active Substance: CORTISONE\HYDROCORTISONE
     Indication: PERICARDIAL EFFUSION
     Route: 065
  6. CLADRIBINE. [Suspect]
     Active Substance: CLADRIBINE
     Indication: SYSTEMIC MASTOCYTOSIS
     Dosage: UNK
     Route: 058
     Dates: start: 201602, end: 201606
  7. CLADRIBINE. [Suspect]
     Active Substance: CLADRIBINE
     Dosage: UNK
     Route: 065
     Dates: start: 201612

REACTIONS (5)
  - Cytopenia [Recovered/Resolved]
  - Drug intolerance [Recovered/Resolved]
  - Nausea [Recovered/Resolved]
  - Neutropenia [Recovered/Resolved]
  - Weight decreased [Recovered/Resolved]
